FAERS Safety Report 12285531 (Version 5)
Quarter: 2016Q2

REPORT INFORMATION
  Report Type: Spontaneous
  Country: ES (occurrence: ES)
  Receive Date: 20160420
  Receipt Date: 20160603
  Transmission Date: 20160815
  Serious: Yes (Hospitalization, Other)
  Sender: FDA-Public Use
  Company Number: ES-SA-2016SA078064

PATIENT
  Age: 51 Year
  Sex: Female

DRUGS (3)
  1. RENVELA [Suspect]
     Active Substance: SEVELAMER CARBONATE
     Indication: HYPERPHOSPHATAEMIA
     Dosage: 2 SACHETS AT LUNCH AND 2 SACHETS AT DINNER
     Route: 065
  2. RENAGEL [Suspect]
     Active Substance: SEVELAMER HYDROCHLORIDE
     Indication: HYPERPHOSPHATAEMIA
     Dosage: 2 TABLETS AT LUNCH AND 2 TABLETS AT DINNER
     Route: 065
  3. FOSRENOL [Concomitant]
     Active Substance: LANTHANUM CARBONATE

REACTIONS (3)
  - Gastrointestinal haemorrhage [Recovering/Resolving]
  - Infection [Unknown]
  - Ileal ulcer [Unknown]
